FAERS Safety Report 5730946-3 (Version None)
Quarter: 2008Q2

REPORT INFORMATION
  Report Type: 
  Country: None (occurrence: None)
  Receive Date: 20080507
  Receipt Date: 20080501
  Transmission Date: 20081010
  Serious: Yes (Hospitalization)
  Sender: FDA-Public Use
  Company Number: AU-AMGEN-US277349

PATIENT
  Sex: Male

DRUGS (4)
  1. PANITUMUMAB [Suspect]
     Indication: COLORECTAL CANCER
     Route: 042
     Dates: start: 20071205
  2. IRINOTECAN HCL [Suspect]
     Indication: COLORECTAL CANCER
  3. FLUOROURACIL [Suspect]
     Indication: COLORECTAL CANCER
  4. LEUCOVORIN CALCIUM [Suspect]
     Indication: COLORECTAL CANCER

REACTIONS (1)
  - PYREXIA [None]
